FAERS Safety Report 10226505 (Version 1)
Quarter: 2014Q2

REPORT INFORMATION
  Report Type: Spontaneous
  Country: US (occurrence: US)
  Receive Date: 20140609
  Receipt Date: 20140609
  Transmission Date: 20141212
  Serious: No
  Sender: FDA-Public Use
  Company Number: US-AMGEN INC.-USASP2013072123

PATIENT
  Sex: Male

DRUGS (1)
  1. PROCRIT [Suspect]
     Indication: RENAL FAILURE CHRONIC
     Dosage: 10000 UNITS, UNK
     Route: 065

REACTIONS (5)
  - Skin discolouration [Unknown]
  - Rash erythematous [Unknown]
  - Skin swelling [Unknown]
  - Oral pruritus [Unknown]
  - Throat irritation [Unknown]
